FAERS Safety Report 9933906 (Version 2)
Quarter: 2014Q1

REPORT INFORMATION
  Report Type: Report from Study
  Country: US (occurrence: US)
  Receive Date: 20140228
  Receipt Date: 20140228
  Transmission Date: 20141002
  Serious: No
  Sender: FDA-Public Use
  Company Number: US-MYLANLABS-2013S1019130

PATIENT
  Sex: Female
  Weight: 86.18 kg

DRUGS (2)
  1. ABSORICA [Suspect]
     Indication: ACNE
     Route: 048
     Dates: start: 20130522, end: 20130607
  2. AMNESTEEM CAPSULES [Suspect]
     Indication: ACNE
     Route: 048
     Dates: start: 20130608, end: 20130807

REACTIONS (2)
  - Abdominal pain [Recovered/Resolved]
  - Abdominal pain upper [Recovered/Resolved]
